FAERS Safety Report 9363700 (Version 5)
Quarter: 2013Q4

REPORT INFORMATION
  Report Type: Spontaneous
  Country: DE (occurrence: None)
  Receive Date: 20130524
  Receipt Date: 20131122
  Transmission Date: 20140711
  Serious: Yes (Hospitalization, Other)
  Sender: FDA-Public Use
  Company Number: 1303-413

PATIENT
  Age: 49 Year
  Sex: Male
  Weight: 73.5 kg

DRUGS (7)
  1. VEGF TRAP-EYE [Suspect]
     Indication: DIABETIC RETINAL OEDEMA
     Route: 031
     Dates: start: 20111115
  2. LANTUS INSULIN (INSULIN GLARGINE) [Concomitant]
  3. NOVORAPID INSULIN (INSULIN ASPART) [Concomitant]
  4. ENALAPRIL MALEATE W/LERCANDIPIN HCL [Concomitant]
  5. ALPHA-ADRENORECEPTOR ANTAGONISTS (ALPHA-ADRENORECEPTOR ANTAGONISTS) [Concomitant]
  6. LUCENTIS (RANIBIZUMAB) [Concomitant]
  7. SODIUM BICARBONATE (SODIUM BICARBONATE) [Concomitant]

REACTIONS (9)
  - Pilonidal cyst [None]
  - Hypotension [None]
  - Metabolic acidosis [None]
  - Diabetic ketoacidosis [None]
  - Diabetic hyperosmolar coma [None]
  - Blood creatinine increased [None]
  - Dehydration [None]
  - Escherichia test positive [None]
  - Pneumonia aspiration [None]
